FAERS Safety Report 13937564 (Version 6)
Quarter: 2019Q3

REPORT INFORMATION
  Report Type: Report from Study
  Country: JP (occurrence: JP)
  Receive Date: 20170905
  Receipt Date: 20190821
  Transmission Date: 20191004
  Serious: Yes (Death, Life-Threatening, Hospitalization)
  Sender: FDA-Public Use
  Company Number: JP-ASTRAZENECA-2017SE89059

PATIENT
  Age: 25278 Day
  Sex: Female

DRUGS (53)
  1. AZD2281 [Suspect]
     Active Substance: OLAPARIB
     Indication: OVARIAN CANCER
     Route: 048
     Dates: start: 20150520, end: 20150520
  2. AZD2281 [Suspect]
     Active Substance: OLAPARIB
     Indication: OVARIAN CANCER
     Route: 048
     Dates: start: 20150820, end: 20150820
  3. AZD2281 [Suspect]
     Active Substance: OLAPARIB
     Indication: OVARIAN CANCER
     Route: 048
     Dates: start: 20151006, end: 20151006
  4. AZD2281 [Suspect]
     Active Substance: OLAPARIB
     Indication: OVARIAN CANCER
     Route: 048
     Dates: start: 20160216, end: 20160216
  5. DIPHENHYDRAMINE. [Concomitant]
     Active Substance: DIPHENHYDRAMINE
     Indication: URTICARIA
     Dosage: 0.5G AS REQUIRED
     Route: 003
     Dates: start: 20170808, end: 20170829
  6. AZD2281 [Suspect]
     Active Substance: OLAPARIB
     Indication: OVARIAN CANCER
     Route: 048
     Dates: start: 20141226, end: 20150113
  7. AZD2281 [Suspect]
     Active Substance: OLAPARIB
     Indication: OVARIAN CANCER
     Route: 048
     Dates: start: 20150708, end: 20150803
  8. AZD2281 [Suspect]
     Active Substance: OLAPARIB
     Indication: OVARIAN CANCER
     Route: 048
     Dates: start: 20160531, end: 20160725
  9. AZD2281 [Suspect]
     Active Substance: OLAPARIB
     Indication: OVARIAN CANCER
     Route: 048
     Dates: start: 20160726, end: 20160726
  10. AZD2281 [Suspect]
     Active Substance: OLAPARIB
     Indication: OVARIAN CANCER
     Route: 048
     Dates: start: 20170307, end: 20170307
  11. AZD2281 [Suspect]
     Active Substance: OLAPARIB
     Indication: OVARIAN CANCER
     Route: 048
     Dates: start: 20170829, end: 20170829
  12. KETOPROFEN. [Concomitant]
     Active Substance: KETOPROFEN
     Indication: OSTEOARTHRITIS
     Route: 003
  13. LANSOPRAZOLE. [Concomitant]
     Active Substance: LANSOPRAZOLE
     Indication: GASTROOESOPHAGEAL REFLUX DISEASE
     Route: 048
     Dates: start: 20160610
  14. AZD2281 [Suspect]
     Active Substance: OLAPARIB
     Indication: OVARIAN CANCER
     Route: 048
     Dates: start: 20141118, end: 20141210
  15. AZD2281 [Suspect]
     Active Substance: OLAPARIB
     Indication: OVARIAN CANCER
     Route: 048
     Dates: start: 20150324, end: 20150324
  16. AZD2281 [Suspect]
     Active Substance: OLAPARIB
     Indication: OVARIAN CANCER
     Route: 048
     Dates: start: 20150521, end: 20150608
  17. AZD2281 [Suspect]
     Active Substance: OLAPARIB
     Indication: OVARIAN CANCER
     Route: 048
     Dates: start: 20160502, end: 20160502
  18. AZD2281 [Suspect]
     Active Substance: OLAPARIB
     Indication: OVARIAN CANCER
     Route: 048
     Dates: start: 20160818, end: 20161010
  19. AZD2281 [Suspect]
     Active Substance: OLAPARIB
     Indication: OVARIAN CANCER
     Route: 048
     Dates: start: 20161102, end: 20161102
  20. AZD2281 [Suspect]
     Active Substance: OLAPARIB
     Indication: OVARIAN CANCER
     Route: 048
     Dates: start: 20170328, end: 20170328
  21. MOSAPRIDE CITRATE HYDRATE [Concomitant]
     Active Substance: MOSAPRIDE CITRATE DIHYDRATE
     Indication: GASTROOESOPHAGEAL REFLUX DISEASE
     Route: 048
  22. EZETIMIBE. [Concomitant]
     Active Substance: EZETIMIBE
     Indication: HYPERLIPIDAEMIA
     Route: 048
     Dates: end: 20170915
  23. AZD2281 [Suspect]
     Active Substance: OLAPARIB
     Indication: OVARIAN CANCER
     Route: 048
     Dates: start: 20150303, end: 20150303
  24. AZD2281 [Suspect]
     Active Substance: OLAPARIB
     Indication: OVARIAN CANCER
     Route: 048
     Dates: start: 20160817, end: 20160817
  25. AZD2281 [Suspect]
     Active Substance: OLAPARIB
     Indication: OVARIAN CANCER
     Route: 048
     Dates: start: 20170815, end: 20170815
  26. WARFARIN POTASSIUM [Concomitant]
     Active Substance: WARFARIN POTASSIUM
     Indication: DEEP VEIN THROMBOSIS
     Route: 048
     Dates: end: 20171001
  27. ETHYL LOFLAZEPATE [Concomitant]
     Active Substance: ETHYL LOFLAZEPATE
     Indication: ANXIETY DISORDER
     Route: 048
  28. MAGNESIUM OXIDE. [Concomitant]
     Active Substance: MAGNESIUM OXIDE
     Indication: CONSTIPATION
     Route: 048
  29. AZD2281 [Suspect]
     Active Substance: OLAPARIB
     Indication: OVARIAN CANCER
     Route: 048
     Dates: start: 20150114, end: 20150114
  30. AZD2281 [Suspect]
     Active Substance: OLAPARIB
     Indication: OVARIAN CANCER
     Route: 048
     Dates: start: 20150609, end: 20150609
  31. AZD2281 [Suspect]
     Active Substance: OLAPARIB
     Indication: OVARIAN CANCER
     Route: 048
     Dates: start: 20150804, end: 20150804
  32. AZD2281 [Suspect]
     Active Substance: OLAPARIB
     Indication: OVARIAN CANCER
     Route: 048
     Dates: start: 20161011, end: 20161011
  33. AZD2281 [Suspect]
     Active Substance: OLAPARIB
     Indication: OVARIAN CANCER
     Route: 048
     Dates: start: 20170329, end: 20170724
  34. AZD2281 [Suspect]
     Active Substance: OLAPARIB
     Indication: OVARIAN CANCER
     Route: 048
     Dates: start: 20170725, end: 20170725
  35. AZD2281 [Suspect]
     Active Substance: OLAPARIB
     Indication: OVARIAN CANCER
     Route: 048
     Dates: start: 20141225, end: 20141225
  36. AZD2281 [Suspect]
     Active Substance: OLAPARIB
     Indication: OVARIAN CANCER
     Route: 048
     Dates: start: 20150210, end: 20150210
  37. AZD2281 [Suspect]
     Active Substance: OLAPARIB
     Indication: OVARIAN CANCER
     Route: 048
     Dates: start: 20150707, end: 20150707
  38. AZD2281 [Suspect]
     Active Substance: OLAPARIB
     Indication: OVARIAN CANCER
     Route: 048
     Dates: start: 20150915, end: 20150915
  39. AZD2281 [Suspect]
     Active Substance: OLAPARIB
     Indication: OVARIAN CANCER
     Route: 048
     Dates: start: 20160126, end: 20160126
  40. AZD2281 [Suspect]
     Active Substance: OLAPARIB
     Indication: OVARIAN CANCER
     Route: 048
     Dates: start: 20160217, end: 20160501
  41. AZD2281 [Suspect]
     Active Substance: OLAPARIB
     Indication: OVARIAN CANCER
     Route: 048
     Dates: start: 20161103, end: 20170306
  42. PRANLUKAST HYDRATE [Concomitant]
     Active Substance: PRANLUKAST HEMIHYDRATE
     Indication: ASTHMA
     Route: 048
  43. AZD2281 [Suspect]
     Active Substance: OLAPARIB
     Indication: OVARIAN CANCER
     Route: 048
     Dates: start: 20150428, end: 20150428
  44. REBAMIPIDE [Concomitant]
     Active Substance: REBAMIPIDE
     Indication: GASTROOESOPHAGEAL REFLUX DISEASE
     Route: 048
     Dates: start: 20160610, end: 20170915
  45. BUDESONIDE. [Concomitant]
     Active Substance: BUDESONIDE
     Indication: ASTHMA
     Dosage: 4 PUFF,BID
     Route: 055
     Dates: end: 20170223
  46. BUDESONIDE. [Concomitant]
     Active Substance: BUDESONIDE
     Indication: ASTHMA
     Dosage: 6 PUFF,TID
     Route: 055
     Dates: start: 20170224
  47. AZD2281 [Suspect]
     Active Substance: OLAPARIB
     Indication: OVARIAN CANCER
     Route: 048
     Dates: start: 20141211, end: 20141211
  48. AZD2281 [Suspect]
     Active Substance: OLAPARIB
     Indication: OVARIAN CANCER
     Route: 048
     Dates: start: 20150211, end: 20150302
  49. AZD2281 [Suspect]
     Active Substance: OLAPARIB
     Indication: OVARIAN CANCER
     Route: 048
     Dates: start: 20150325, end: 20150427
  50. AZD2281 [Suspect]
     Active Substance: OLAPARIB
     Indication: OVARIAN CANCER
     Route: 048
     Dates: start: 20150821, end: 20150914
  51. AZD2281 [Suspect]
     Active Substance: OLAPARIB
     Indication: OVARIAN CANCER
     Route: 048
     Dates: start: 20151007, end: 20160125
  52. AZD2281 [Suspect]
     Active Substance: OLAPARIB
     Indication: OVARIAN CANCER
     Route: 048
     Dates: start: 20160530, end: 20160530
  53. AZD2281 [Suspect]
     Active Substance: OLAPARIB
     Indication: OVARIAN CANCER
     Route: 048
     Dates: start: 20170816, end: 20170828

REACTIONS (1)
  - Acute myeloid leukaemia [Fatal]

NARRATIVE: CASE EVENT DATE: 20170830
